FAERS Safety Report 5317015-1 (Version None)
Quarter: 2007Q2

REPORT INFORMATION
  Report Type: 
  Country: None (occurrence: None)
  Receive Date: 20070504
  Receipt Date: 20070424
  Transmission Date: 20071010
  Serious: Yes (Other)
  Sender: FDA-Public Use
  Company Number: CN-ROCHE-495318

PATIENT
  Age: 50 Year
  Sex: Female

DRUGS (1)
  1. CEFTRIAXONE SODIUM [Suspect]
     Indication: PNEUMONIA
     Dosage: 4.0GRAM CEFTRIAXONE SODIUM ADDED TO 250 ML OF 5% DEXTROSE-SALINE SOLUTION
     Route: 041

REACTIONS (1)
  - ANAPHYLACTIC SHOCK [None]
